FAERS Safety Report 13416083 (Version 2)
Quarter: 2017Q2

REPORT INFORMATION
  Report Type: Report from Study
  Country: PH (occurrence: PH)
  Receive Date: 20170407
  Receipt Date: 20170523
  Transmission Date: 20170830
  Serious: Yes (Death, Other)
  Sender: FDA-Public Use
  Company Number: PHHY2017PH052475

PATIENT
  Age: 69 Year
  Sex: Female

DRUGS (1)
  1. TASIGNA [Suspect]
     Active Substance: NILOTINIB
     Indication: CHRONIC MYELOID LEUKAEMIA
     Dosage: 800 MG, UNK
     Route: 048
     Dates: start: 20130425

REACTIONS (9)
  - Nosocomial infection [Fatal]
  - Acute respiratory failure [Fatal]
  - Chronic myeloid leukaemia [Unknown]
  - Cytopenia [Unknown]
  - Hypertension [Unknown]
  - Blast cell crisis [Unknown]
  - Leukostasis syndrome [Fatal]
  - Cytogenetic analysis abnormal [Unknown]
  - Hyperleukocytosis [Unknown]

NARRATIVE: CASE EVENT DATE: 20170323
